FAERS Safety Report 15857048 (Version 1)
Quarter: 2018Q4

REPORT INFORMATION
  Report Type: Spontaneous
  Country: US (occurrence: US)
  Receive Date: 20181227
  Receipt Date: 20181227
  Transmission Date: 20190205
  Serious: No
  Sender: FDA-Public Use
  Company Number: None

PATIENT
  Sex: Female

DRUGS (1)
  1. CYCLOSPORINE MODIFIED 100MG MAYNE PHARMA [Suspect]
     Active Substance: CYCLOSPORINE
     Indication: LICHEN PLANUS
     Route: 048
     Dates: start: 20180928

REACTIONS (8)
  - Arthralgia [None]
  - Vision blurred [None]
  - Hypoaesthesia [None]
  - Pain in extremity [None]
  - Muscle twitching [None]
  - Paraesthesia [None]
  - Chest pain [None]
  - Platelet count increased [None]
